FAERS Safety Report 19269030 (Version 1)
Quarter: 2021Q2

REPORT INFORMATION
  Report Type: Spontaneous
  Country: US (occurrence: US)
  Receive Date: 20210518
  Receipt Date: 20210518
  Transmission Date: 20210717
  Serious: Yes (Disabling)
  Sender: FDA-Public Use
  Company Number: None

PATIENT
  Age: 45 Year
  Sex: Female
  Weight: 103.5 kg

DRUGS (13)
  1. CYANOCOBALAMIN. [Concomitant]
     Active Substance: CYANOCOBALAMIN
  2. PLAQUENIL [Concomitant]
     Active Substance: HYDROXYCHLOROQUINE SULFATE
  3. COENZYME Q10 [Concomitant]
     Active Substance: DIETARY SUPPLEMENT\UBIDECARENONE
  4. SALAGEN [Concomitant]
     Active Substance: PILOCARPINE HYDROCHLORIDE
  5. XELJANZ [Concomitant]
     Active Substance: TOFACITINIB CITRATE
  6. IBUPROFEN. [Concomitant]
     Active Substance: IBUPROFEN
  7. LOSARTAN. [Concomitant]
     Active Substance: LOSARTAN
  8. PREDNISONE. [Concomitant]
     Active Substance: PREDNISONE
  9. XELJANZ XR [Suspect]
     Active Substance: TOFACITINIB CITRATE
     Indication: RHEUMATOID ARTHRITIS
     Dosage: ?          QUANTITY:30 TABLET(S);?
     Route: 048
     Dates: start: 20200729
  10. MAXIDEX [Concomitant]
     Active Substance: DEXAMETHASONE
  11. RESTASIS [Concomitant]
     Active Substance: CYCLOSPORINE
  12. ALBUTEROL. [Concomitant]
     Active Substance: ALBUTEROL
  13. ACETIC ACID. [Concomitant]
     Active Substance: ACETIC ACID

REACTIONS (4)
  - Therapy interrupted [None]
  - Heart rate irregular [None]
  - Blood pressure systolic increased [None]
  - Blood pressure diastolic increased [None]

NARRATIVE: CASE EVENT DATE: 20200801
